FAERS Safety Report 4885491-4 (Version None)
Quarter: 2005Q4

REPORT INFORMATION
  Report Type: 
  Country: None (occurrence: None)
  Receive Date: 20051216
  Receipt Date: 20050930
  Transmission Date: 20060501
  Serious: Yes (Hospitalization)
  Sender: FDA-Public Use
  Company Number: BDI-007584

PATIENT
  Age: 59 Year
  Sex: Female

DRUGS (2)
  1. MULTIHANCE [Suspect]
     Indication: METASTASES TO CENTRAL NERVOUS SYSTEM
     Dosage: 33 ML ONCE IV
     Route: 042
     Dates: start: 20050929, end: 20050929
  2. MULTIHANCE [Suspect]
     Indication: NUCLEAR MAGNETIC RESONANCE IMAGING BRAIN
     Dosage: 33 ML ONCE IV
     Route: 042
     Dates: start: 20050929, end: 20050929

REACTIONS (1)
  - ANAPHYLACTIC REACTION [None]
